FAERS Safety Report 17657083 (Version 1)
Quarter: 2020Q2

REPORT INFORMATION
  Report Type: Spontaneous
  Country: IN (occurrence: IN)
  Receive Date: 20200410
  Receipt Date: 20200410
  Transmission Date: 20200713
  Serious: Yes (Other)
  Sender: FDA-Public Use
  Company Number: IN-FRESENIUS KABI-FK202003655

PATIENT
  Age: 35 Year
  Sex: Female
  Weight: 44 kg

DRUGS (8)
  1. DEXMEDETOMIDINE (MANUFACTURER UNKNOWN) [Suspect]
     Active Substance: DEXMEDETOMIDINE
     Indication: SEDATIVE THERAPY
     Route: 065
  2. DEXMEDETOMIDINE (MANUFACTURER UNKNOWN) [Suspect]
     Active Substance: DEXMEDETOMIDINE
     Route: 065
  3. EPINEPHRINE BITARTRATE [Suspect]
     Active Substance: EPINEPHRINE BITARTRATE
     Indication: PRODUCT USED FOR UNKNOWN INDICATION
     Dosage: 3 AMPOULES
     Route: 045
  4. MIDAZOLAM. [Concomitant]
     Active Substance: MIDAZOLAM
     Indication: PRODUCT USED FOR UNKNOWN INDICATION
     Route: 042
  5. GLYCOPYRRONIUM BROMIDE [Concomitant]
     Active Substance: GLYCOPYRRONIUM
     Indication: PRODUCT USED FOR UNKNOWN INDICATION
     Route: 065
  6. PENTAZOCINE [Concomitant]
     Active Substance: PENTAZOCINE
     Indication: PRODUCT USED FOR UNKNOWN INDICATION
     Route: 065
  7. LIDOCAINE (MANUFACTURER UNKNOWN) [Suspect]
     Active Substance: LIDOCAINE
     Indication: PRODUCT USED FOR UNKNOWN INDICATION
     Dosage: RESULTANT CONCENTRATION 100 MCG/ML
     Route: 045
  8. DEXMEDETOMIDINE (MANUFACTURER UNKNOWN) [Suspect]
     Active Substance: DEXMEDETOMIDINE
     Route: 065

REACTIONS (2)
  - Pulmonary oedema [Recovered/Resolved]
  - Myocardial ischaemia [Recovered/Resolved]
